FAERS Safety Report 25971067 (Version 1)
Quarter: 2025Q4

REPORT INFORMATION
  Report Type: Spontaneous
  Country: CN (occurrence: CN)
  Receive Date: 20251028
  Receipt Date: 20251028
  Transmission Date: 20260117
  Serious: Yes (Hospitalization, Other)
  Sender: NOVARTIS
  Company Number: CN-002147023-NVSC2025CN164044

PATIENT
  Age: 5 Year
  Sex: Female
  Weight: 18.8 kg

DRUGS (4)
  1. CYCLOSPORINE [Interacting]
     Active Substance: CYCLOSPORINE
     Indication: Aplastic anaemia
     Dosage: 50 MG, Q12H
     Route: 048
     Dates: start: 2020, end: 20231019
  2. VORICONAZOLE [Interacting]
     Active Substance: VORICONAZOLE
     Indication: Aspergillus infection
     Dosage: 0.15 G, Q12H
     Route: 048
     Dates: start: 20231009, end: 20231019
  3. VORICONAZOLE [Suspect]
     Active Substance: VORICONAZOLE
     Indication: Aspergillus infection
     Dosage: 0.15 G, Q12H
     Route: 048
     Dates: start: 20231023
  4. VORICONAZOLE [Suspect]
     Active Substance: VORICONAZOLE
     Dosage: 0.075 G, Q12H
     Route: 048

REACTIONS (5)
  - Acute kidney injury [Recovering/Resolving]
  - Drug level increased [Recovering/Resolving]
  - Drug interaction [Unknown]
  - Aspergillus infection [Unknown]
  - Off label use [Unknown]
